FAERS Safety Report 15518110 (Version 1)
Quarter: 2018Q4

REPORT INFORMATION
  Report Type: Spontaneous
  Country: NL (occurrence: NL)
  Receive Date: 20181017
  Receipt Date: 20181017
  Transmission Date: 20190205
  Serious: Yes (Other)
  Sender: FDA-Public Use
  Company Number: NL-TEVA-2018-NL-963429

PATIENT
  Sex: Female

DRUGS (1)
  1. VALSARTAN OMHULDE TABLET, 80 MG (MILLIGRAM) [Suspect]
     Active Substance: VALSARTAN
     Route: 065

REACTIONS (1)
  - Breast cancer [Unknown]
